FAERS Safety Report 8960344 (Version 2)
Quarter: 2013Q3

REPORT INFORMATION
  Report Type: Spontaneous
  Country: US (occurrence: US)
  Receive Date: 20121211
  Receipt Date: 20130924
  Transmission Date: 20140515
  Serious: No
  Sender: FDA-Public Use
  Company Number: US-009507513-1212USA001061

PATIENT
  Age: 41 Year
  Sex: Female
  Weight: 99.77 kg

DRUGS (5)
  1. CLARITIN [Suspect]
     Indication: HYPERSENSITIVITY
     Dosage: 10 MG, QD
     Route: 048
     Dates: start: 20121022
  2. CLARITIN [Suspect]
     Indication: SNEEZING
  3. CLARITIN [Suspect]
     Indication: LACRIMATION INCREASED
  4. CLARITIN [Suspect]
     Indication: RHINORRHOEA
  5. CLARITIN [Suspect]
     Indication: SEASONAL ALLERGY

REACTIONS (3)
  - Head discomfort [Recovered/Resolved]
  - Somnolence [Recovered/Resolved]
  - Drug ineffective [Unknown]
